FAERS Safety Report 12700444 (Version 1)
Quarter: 2016Q3

REPORT INFORMATION
  Report Type: Spontaneous
  Country: US (occurrence: US)
  Receive Date: 20160830
  Receipt Date: 20160830
  Transmission Date: 20161109
  Serious: No
  Sender: FDA-Public Use
  Company Number: US-SA-2016SA031356

PATIENT
  Age: 19 Year
  Sex: Female
  Weight: 103.41 kg

DRUGS (17)
  1. FABRAZYME [Suspect]
     Active Substance: AGALSIDASE BETA
     Indication: FABRY^S DISEASE
     Route: 042
     Dates: start: 20130925
  2. CATHFLO ACTIVASE [Concomitant]
     Active Substance: ALTEPLASE
     Indication: FLUSHING
     Route: 042
     Dates: start: 20150707
  3. MELOXICAM. [Concomitant]
     Active Substance: MELOXICAM
     Dates: start: 20140319
  4. GABAPENTIN. [Concomitant]
     Active Substance: GABAPENTIN
     Dates: start: 20140208
  5. AMITRIPTYLINE [Concomitant]
     Active Substance: AMITRIPTYLINE
     Dates: start: 20140902
  6. BUPROPION. [Concomitant]
     Active Substance: BUPROPION
     Dates: start: 20140319
  7. ALBUTEROL. [Concomitant]
     Active Substance: ALBUTEROL
     Dates: start: 20150929
  8. DIPHENHYDRAMINE. [Concomitant]
     Active Substance: DIPHENHYDRAMINE
     Indication: ANAPHYLACTIC REACTION
     Dates: start: 20150707
  9. LIDOCAINE/PRILOCAINE [Concomitant]
     Indication: FLUSHING
     Route: 061
     Dates: start: 20150707
  10. EPIPEN [Concomitant]
     Active Substance: EPINEPHRINE
     Indication: ANAPHYLACTIC REACTION
     Route: 030
     Dates: start: 20150707
  11. CYCLOFEM [Concomitant]
     Dates: start: 20131001
  12. PROVENTIL [Concomitant]
     Active Substance: ALBUTEROL
     Dosage: DOSE:1 PUFF(S)
     Dates: start: 20140319
  13. TYLENOL [Concomitant]
     Active Substance: ACETAMINOPHEN
     Dates: start: 20131001
  14. ACETAMINOPHEN. [Concomitant]
     Active Substance: ACETAMINOPHEN
     Indication: PREMEDICATION
     Route: 048
     Dates: start: 20150707
  15. SODIUM CHLORIDE. [Concomitant]
     Active Substance: SODIUM CHLORIDE
     Route: 042
     Dates: start: 20150707
  16. LORATADINE. [Concomitant]
     Active Substance: LORATADINE
     Dates: start: 20150929
  17. NORMAL SALINE [Concomitant]
     Active Substance: SODIUM CHLORIDE
     Indication: MEDICATION DILUTION
     Route: 042
     Dates: start: 20150707

REACTIONS (1)
  - Sinusitis [Unknown]
